FAERS Safety Report 9168661 (Version 2)
Quarter: 2013Q1

REPORT INFORMATION
  Report Type: Spontaneous
  Country: US (occurrence: US)
  Receive Date: 20130318
  Receipt Date: 20130327
  Transmission Date: 20140127
  Serious: Yes (Life-Threatening)
  Sender: FDA-Public Use
  Company Number: US-MERCK-1303USA007143

PATIENT
  Age: 23 Year
  Sex: Male
  Weight: 77.98 kg

DRUGS (3)
  1. SAPHRIS [Suspect]
     Indication: DEPRESSION
     Dosage: 5 MG, HS
     Route: 060
     Dates: start: 20120904, end: 20121026
  2. SAPHRIS [Suspect]
     Indication: ANXIETY
  3. SAPHRIS [Suspect]
     Indication: PANIC ATTACK

REACTIONS (8)
  - Feeling drunk [Recovered/Resolved]
  - Muscle fatigue [Recovered/Resolved]
  - Scratch [Recovered/Resolved]
  - Contusion [Recovered/Resolved]
  - Discomfort [Recovered/Resolved]
  - Vomiting [Recovered/Resolved]
  - Dizziness [Recovered/Resolved]
  - Loss of consciousness [Recovered/Resolved]
